FAERS Safety Report 5740190-1 (Version None)
Quarter: 2008Q2

REPORT INFORMATION
  Report Type: 
  Country: None (occurrence: None)
  Receive Date: 20080516
  Receipt Date: 20080513
  Transmission Date: 20081010
  Serious: Yes (Hospitalization)
  Sender: FDA-Public Use
  Company Number: SE-BRISTOL-MYERS SQUIBB COMPANY-14137038

PATIENT
  Age: 56 Year
  Sex: Female

DRUGS (7)
  1. SPRYCEL [Suspect]
     Indication: LEUKAEMIA
     Route: 048
     Dates: start: 20080301
  2. CYTARABINE LIPOSOME [Suspect]
     Indication: CHRONIC LYMPHOCYTIC LEUKAEMIA
     Dosage: GIVEN INTRA RECTALLY.
     Route: 054
     Dates: start: 20080301, end: 20080301
  3. VFEND [Concomitant]
  4. IMPORTAL [Concomitant]
  5. OMEPRAZOLE [Concomitant]
  6. DEXACORTIN [Concomitant]
     Dates: start: 20080301
  7. ACYCLOVIR [Concomitant]

REACTIONS (2)
  - ARACHNOIDITIS [None]
  - SIMPLE PARTIAL SEIZURES [None]
